FAERS Safety Report 10417759 (Version 2)
Quarter: 2014Q3

REPORT INFORMATION
  Report Type: Spontaneous
  Country: US (occurrence: None)
  Receive Date: 20140609
  Receipt Date: 20140815
  Transmission Date: 20150326
  Serious: No
  Sender: FDA-Public Use
  Company Number: 2014TUS001494

PATIENT
  Sex: Female

DRUGS (5)
  1. ZOLOFT [Concomitant]
     Active Substance: SERTRALINE HYDROCHLORIDE
  2. ULTRAM (TRAMADOL HYDROCHLORIDE) [Concomitant]
     Active Substance: TRAMADOL HYDROCHLORIDE
  3. ATENOLOL (ATENOLOL) [Concomitant]
     Active Substance: ATENOLOL
  4. BRINTELLIX [Suspect]
     Active Substance: VORTIOXETINE HYDROBROMIDE
     Indication: DEPRESSION
     Route: 048
     Dates: start: 20140226, end: 20140312
  5. BRINTELLIX [Suspect]
     Active Substance: VORTIOXETINE HYDROBROMIDE
     Indication: MAJOR DEPRESSION
     Route: 048
     Dates: start: 20140226, end: 20140312

REACTIONS (18)
  - Nervousness [None]
  - Psychiatric symptom [None]
  - Condition aggravated [None]
  - Anxiety [None]
  - Paranasal sinus hypersecretion [None]
  - Chest discomfort [None]
  - Insomnia [None]
  - Dyspnoea [None]
  - Speech disorder [None]
  - Dysarthria [None]
  - Disturbance in attention [None]
  - Depressed mood [None]
  - Nausea [None]
  - Depression [None]
  - Palpitations [None]
  - Drug ineffective [None]
  - Panic attack [None]
  - Sinusitis [None]

NARRATIVE: CASE EVENT DATE: 20140227
